FAERS Safety Report 7170294-0 (Version None)
Quarter: 2010Q4

REPORT INFORMATION
  Report Type: 
  Country: None (occurrence: None)
  Receive Date: 20101217
  Receipt Date: 20100910
  Transmission Date: 20110411
  Serious: Yes (Other)
  Sender: FDA-Public Use
  Company Number: A0880666A

PATIENT
  Age: 21 Year
  Sex: Female

DRUGS (7)
  1. LAMICTAL [Suspect]
     Indication: EPILEPSY
     Dosage: 800MG PER DAY
     Route: 048
     Dates: start: 20100202
  2. CLONAZEPAM [Concomitant]
  3. UNKNOWN [Concomitant]
  4. SODIUM PHENYLBUTYRATE [Concomitant]
  5. PHENOBARBITAL [Concomitant]
  6. HYDROXYPROGESTERONE CAPROATE [Concomitant]
  7. RUFINAMIDE [Concomitant]

REACTIONS (1)
  - CONVULSION [None]
